FAERS Safety Report 25590864 (Version 1)
Quarter: 2025Q3

REPORT INFORMATION
  Report Type: Spontaneous
  Country: CN (occurrence: CN)
  Receive Date: 20250722
  Receipt Date: 20250722
  Transmission Date: 20251021
  Serious: Yes (Life-Threatening)
  Sender: BAYER HEALTHCARE PHARMACEUTICALS INC.
  Company Number: CN-BAYER-2025A097196

PATIENT
  Age: 60 Year
  Sex: Male

DRUGS (3)
  1. GADOBUTROL [Suspect]
     Active Substance: GADOBUTROL
     Indication: Magnetic resonance imaging breast
     Route: 042
     Dates: start: 20250623, end: 20250623
  2. GADOBUTROL [Suspect]
     Active Substance: GADOBUTROL
     Indication: Magnetic resonance imaging
  3. GADOBUTROL [Suspect]
     Active Substance: GADOBUTROL
     Indication: Acute myocardial infarction

REACTIONS (7)
  - Contrast media allergy [Recovering/Resolving]
  - Loss of consciousness [Recovered/Resolved]
  - Dizziness [None]
  - Cold sweat [None]
  - Blood pressure immeasurable [Recovering/Resolving]
  - Oxygen saturation immeasurable [Recovered/Resolved]
  - Heart rate increased [None]

NARRATIVE: CASE EVENT DATE: 20250623
